FAERS Safety Report 13641064 (Version 1)
Quarter: 2017Q2

REPORT INFORMATION
  Report Type: Spontaneous
  Country: US (occurrence: US)
  Receive Date: 20170612
  Receipt Date: 20170612
  Transmission Date: 20170830
  Serious: Yes (Hospitalization, Other)
  Sender: FDA-Public Use
  Company Number: US-REGULIS-2021801

PATIENT
  Sex: Female

DRUGS (1)
  1. PROVAYBLUE [Suspect]
     Active Substance: METHYLENE BLUE
     Indication: LYMPHATIC MAPPING
     Route: 058
     Dates: start: 20170505, end: 20170505

REACTIONS (3)
  - Skin necrosis [Unknown]
  - Skin discolouration [Unknown]
  - Cellulitis [Unknown]

NARRATIVE: CASE EVENT DATE: 20170505
